FAERS Safety Report 5117184-2 (Version None)
Quarter: 2006Q3

REPORT INFORMATION
  Report Type: 
  Country: None (occurrence: None)
  Receive Date: 20060929
  Receipt Date: 20060821
  Transmission Date: 20061208
  Serious: Yes (Hospitalization)
  Sender: FDA-Public Use
  Company Number: PHRM2006FR02380

PATIENT
  Age: 45 Year
  Sex: Male

DRUGS (4)
  1. KETODERM [Concomitant]
     Indication: INTERTRIGO
  2. CIFLOX [Concomitant]
     Indication: URINARY TRACT INFECTION
     Dates: start: 20060627, end: 20060629
  3. BACTRIM [Suspect]
     Indication: URINARY TRACT INFECTION
     Dosage: 2 DF, QD
     Route: 048
     Dates: start: 20060627, end: 20060713
  4. LAMISIL [Suspect]
     Indication: TINEA CRURIS
     Dosage: 500 MG/DAY
     Route: 048
     Dates: start: 20060620, end: 20060630

REACTIONS (15)
  - ALANINE AMINOTRANSFERASE INCREASED [None]
  - ASPARTATE AMINOTRANSFERASE INCREASED [None]
  - BILIRUBIN CONJUGATED INCREASED [None]
  - BLOOD ALKALINE PHOSPHATASE INCREASED [None]
  - BLOOD BILIRUBIN INCREASED [None]
  - BLOOD BILIRUBIN UNCONJUGATED [None]
  - CHROMATURIA [None]
  - FAECES DISCOLOURED [None]
  - GAMMA-GLUTAMYLTRANSFERASE INCREASED [None]
  - HEPATITIS [None]
  - HEPATITIS A ANTIBODY POSITIVE [None]
  - JAUNDICE [None]
  - OCULAR ICTERUS [None]
  - PRURITUS [None]
  - RASH GENERALISED [None]
